FAERS Safety Report 17516104 (Version 2)
Quarter: 2020Q1

REPORT INFORMATION
  Report Type: Spontaneous
  Country: US (occurrence: US)
  Receive Date: 20200309
  Receipt Date: 20200309
  Transmission Date: 20200409
  Serious: No
  Sender: FDA-Public Use
  Company Number: US-TARO-2019TAR00718

PATIENT
  Sex: Female

DRUGS (2)
  1. DESOXIMETASONE OINTMENT USP 0.05% [Suspect]
     Active Substance: DESOXIMETASONE
  2. HYDROCORTISONE CREAM 1% WITH ALOE [Suspect]
     Active Substance: HYDROCORTISONE

REACTIONS (1)
  - Drug hypersensitivity [Unknown]
